FAERS Safety Report 6613111-7 (Version None)
Quarter: 2010Q1

REPORT INFORMATION
  Report Type: 
  Country: None (occurrence: None)
  Receive Date: 20100304
  Receipt Date: 20100223
  Transmission Date: 20100710
  Serious: Yes (Other)
  Sender: FDA-Public Use
  Company Number: CA-JNJFOC-20100300857

PATIENT
  Sex: Male
  Weight: 100 kg

DRUGS (6)
  1. REMICADE [Suspect]
     Indication: POLYARTHRITIS
     Route: 042
  2. REMICADE [Suspect]
     Dosage: FREQUENCY NOTED AS EVERY 8-10 WEEKS
     Route: 042
  3. METHOTREXATE [Concomitant]
  4. FOLIC ACID [Concomitant]
  5. FOSAMAX [Concomitant]
  6. ASPIRIN [Concomitant]
     Route: 048

REACTIONS (3)
  - PROSTATITIS [None]
  - SKELETAL INJURY [None]
  - SQUAMOUS CELL CARCINOMA [None]
